FAERS Safety Report 9528250 (Version 1)
Quarter: 2013Q1

REPORT INFORMATION
  Report Type: Spontaneous
  Country: US (occurrence: None)
  Receive Date: 20130314
  Receipt Date: 20130314
  Transmission Date: 20140127
  Serious: No
  Sender: FDA-Public Use
  Company Number: 1211USA011772

PATIENT
  Age: 67 Year
  Sex: Male

DRUGS (3)
  1. VICTRELIS ( BOCEPREVIR) CAPSULE, 200 MG [Suspect]
     Indication: CHRONIC HEPATITIS C
     Route: 048
     Dates: start: 201209
  2. PEGINTRON (PEGINTERFERON ALFA-2B) POWDER FOR INJECTION [Suspect]
     Route: 058
  3. RIBAPAK (RIBAVIRIN) [Suspect]

REACTIONS (1)
  - Dysgeusia [None]
